FAERS Safety Report 8415588-3 (Version None)
Quarter: 2012Q2

REPORT INFORMATION
  Report Type: 
  Country: None (occurrence: None)
  Receive Date: 20120606
  Receipt Date: 20120529
  Transmission Date: 20120825
  Serious: Yes (Death, Life-Threatening, Hospitalization)
  Sender: FDA-Public Use
  Company Number: JP-EISAI INC-E7389-01886-SPO-JP

PATIENT
  Age: 68 Year
  Sex: Female
  Weight: 42 kg

DRUGS (1)
  1. HALAVEN [Suspect]
     Indication: BREAST CANCER
     Dates: start: 20111017, end: 20111129

REACTIONS (2)
  - FEBRILE NEUTROPENIA [None]
  - PNEUMONIA [None]
